FAERS Safety Report 19908564 (Version 1)
Quarter: 2021Q4

REPORT INFORMATION
  Report Type: Spontaneous
  Country: US (occurrence: US)
  Receive Date: 20211001
  Receipt Date: 20211001
  Transmission Date: 20220303
  Serious: No
  Sender: FDA-Public Use
  Company Number: US-TEVA-2021-US-1950927

PATIENT
  Sex: Female

DRUGS (1)
  1. ALBUTEROL SULFATE [Suspect]
     Active Substance: ALBUTEROL SULFATE
     Indication: Asthma
     Dosage: 2 PUFFS EVERY 6 HOURS AS NEEDED
     Route: 065

REACTIONS (7)
  - Treatment noncompliance [Unknown]
  - Accidental overdose [Unknown]
  - Tremor [Recovering/Resolving]
  - Feeling jittery [Recovering/Resolving]
  - Prescription drug used without a prescription [Unknown]
  - Expired product administered [Unknown]
  - Wrong technique in device usage process [Unknown]

NARRATIVE: CASE EVENT DATE: 20210902
